FAERS Safety Report 19015537 (Version 3)
Quarter: 2022Q1

REPORT INFORMATION
  Report Type: Spontaneous
  Country: IT (occurrence: IT)
  Receive Date: 20210317
  Receipt Date: 20220203
  Transmission Date: 20220423
  Serious: Yes (Death, Life-Threatening, Other)
  Sender: FDA-Public Use
  Company Number: IT-AMGEN-ITASP2021039672

PATIENT

DRUGS (10)
  1. ROMIPLOSTIM [Suspect]
     Active Substance: ROMIPLOSTIM
     Indication: Evans syndrome
     Dosage: UNK
     Route: 065
  2. RITUXIMAB [Suspect]
     Active Substance: RITUXIMAB
     Indication: Evans syndrome
     Route: 065
  3. HUMAN IMMUNOGLOBULIN G [Suspect]
     Active Substance: HUMAN IMMUNOGLOBULIN G
     Indication: Evans syndrome
     Route: 065
  4. MYCOPHENOLATE MOFETIL [Suspect]
     Active Substance: MYCOPHENOLATE MOFETIL
     Indication: Evans syndrome
     Route: 065
  5. AZATHIOPRINE [Suspect]
     Active Substance: AZATHIOPRINE
     Indication: Evans syndrome
     Route: 065
  6. CYCLOPHOSPHAMIDE [Suspect]
     Active Substance: CYCLOPHOSPHAMIDE
     Indication: Evans syndrome
     Route: 065
  7. ELTROMBOPAG [Suspect]
     Active Substance: ELTROMBOPAG
     Indication: Evans syndrome
     Route: 065
  8. BORTEZOMIB [Suspect]
     Active Substance: BORTEZOMIB
     Indication: Evans syndrome
     Route: 065
  9. FOSTAMATINIB [Suspect]
     Active Substance: FOSTAMATINIB
     Indication: Evans syndrome
     Route: 065
  10. PARSACLISIB [Suspect]
     Active Substance: PARSACLISIB
     Indication: Evans syndrome
     Route: 065

REACTIONS (33)
  - Death [Fatal]
  - Infection [Fatal]
  - Thrombosis [Fatal]
  - Evans syndrome [Fatal]
  - Pneumonia bacterial [Unknown]
  - Salmonella bacteraemia [Unknown]
  - Pseudomonal bacteraemia [Unknown]
  - Staphylococcal bacteraemia [Unknown]
  - Streptococcal bacteraemia [Unknown]
  - Anal abscess [Unknown]
  - Pneumocystis jirovecii pneumonia [Unknown]
  - Meningitis [Unknown]
  - Tuberculosis [Unknown]
  - Hepatitis C [Unknown]
  - Lymphoproliferative disorder [Unknown]
  - Cerebrovascular accident [Unknown]
  - Visceral venous thrombosis [Unknown]
  - Acute myocardial infarction [Unknown]
  - Sepsis [Fatal]
  - Multiple organ dysfunction syndrome [Fatal]
  - Renal cancer [Fatal]
  - Atrial thrombosis [Unknown]
  - Superficial vein thrombosis [Unknown]
  - Deep vein thrombosis [Unknown]
  - Pulmonary embolism [Fatal]
  - Haemorrhage [Fatal]
  - Off label use [Unknown]
  - Urinary tract infection [Unknown]
  - Subcutaneous abscess [Unknown]
  - Herpes simplex [Unknown]
  - Herpes zoster [Unknown]
  - Enteritis [Unknown]
  - Eye infection [Unknown]
